FAERS Safety Report 6212117-X (Version None)
Quarter: 2009Q2

REPORT INFORMATION
  Report Type: 
  Country: None (occurrence: None)
  Receive Date: 20090602
  Receipt Date: 20090522
  Transmission Date: 20091009
  Serious: Yes (Disabling)
  Sender: FDA-Public Use
  Company Number: PHHY2009CA19229

PATIENT
  Sex: Female

DRUGS (2)
  1. ACLASTA [Suspect]
     Indication: OSTEOPOROSIS
     Dosage: ONE INFUSION ONLY
     Dates: start: 20090515
  2. SYNTHROID [Concomitant]
     Dosage: 175 MG, QD
     Route: 048

REACTIONS (7)
  - ABASIA [None]
  - ARTHRALGIA [None]
  - ARTHROPATHY [None]
  - DYSSTASIA [None]
  - HEADACHE [None]
  - NAUSEA [None]
  - PAIN [None]
